FAERS Safety Report 24307629 (Version 1)
Quarter: 2024Q3

REPORT INFORMATION
  Report Type: Spontaneous
  Country: US (occurrence: None)
  Receive Date: 20240911
  Receipt Date: 20240911
  Transmission Date: 20241016
  Serious: Yes (Death)
  Sender: Public
  Company Number: None

PATIENT
  Sex: Female
  Weight: 76.9 kg

DRUGS (1)
  1. PONATINIB HYDROCHLORIDE [Suspect]
     Active Substance: PONATINIB HYDROCHLORIDE

REACTIONS (10)
  - Stem cell transplant [None]
  - Syncope [None]
  - Thrombotic microangiopathy [None]
  - Speech disorder [None]
  - Mental status changes [None]
  - Blood pressure immeasurable [None]
  - Respiratory failure [None]
  - Unresponsive to stimuli [None]
  - Pulse absent [None]
  - Mydriasis [None]

NARRATIVE: CASE EVENT DATE: 20231224
